FAERS Safety Report 20423010 (Version 2)
Quarter: 2022Q1

REPORT INFORMATION
  Report Type: Spontaneous
  Country: US (occurrence: US)
  Receive Date: 20220203
  Receipt Date: 20220207
  Transmission Date: 20220423
  Serious: Yes (Other)
  Sender: FDA-Public Use
  Company Number: US-PFIZER INC-202200163744

PATIENT
  Age: 69 Year
  Sex: Female
  Weight: 76.66 kg

DRUGS (4)
  1. LATANOPROST [Suspect]
     Active Substance: LATANOPROST
     Indication: Glaucoma
     Dosage: 1 DROP, IN EACH EYE ONCE A DAY IN THE EVENING BEFORE BED AROUND 9 PM
     Route: 047
  2. LATANOPROST [Suspect]
     Active Substance: LATANOPROST
     Dosage: 125 UG
     Route: 047
     Dates: start: 20211230
  3. PRAVASTATIN [Concomitant]
     Active Substance: PRAVASTATIN
     Indication: Blood cholesterol increased
     Dosage: 20 MG, ONCE  A DAY
     Route: 048
     Dates: start: 20070101
  4. METOPROLOL SUCCINATE [Concomitant]
     Active Substance: METOPROLOL SUCCINATE
     Indication: Hypertension
     Dosage: 25 MG, ONCE A DAY
     Route: 048
     Dates: start: 20070101

REACTIONS (1)
  - Postmenopausal haemorrhage [Not Recovered/Not Resolved]

NARRATIVE: CASE EVENT DATE: 20220127
